FAERS Safety Report 9414925 (Version 2)
Quarter: 2013Q3

REPORT INFORMATION
  Report Type: Spontaneous
  Country: JP (occurrence: JP)
  Receive Date: 20130723
  Receipt Date: 20130814
  Transmission Date: 20140515
  Serious: Yes (Death, Other)
  Sender: FDA-Public Use
  Company Number: JP-PFIZER INC-2013210961

PATIENT
  Age: 49 Year
  Sex: Male

DRUGS (1)
  1. SOLU-MEDROL [Suspect]
     Dosage: SEMI-PULSE THERAPY
     Dates: start: 2007

REACTIONS (3)
  - Histiocytosis haematophagic [Fatal]
  - Cytomegalovirus infection [Not Recovered/Not Resolved]
  - Drug ineffective [Unknown]
